FAERS Safety Report 17442772 (Version 1)
Quarter: 2020Q1

REPORT INFORMATION
  Report Type: Spontaneous
  Country: NL (occurrence: NL)
  Receive Date: 20200220
  Receipt Date: 20200220
  Transmission Date: 20200409
  Serious: Yes (Life-Threatening, Hospitalization)
  Sender: FDA-Public Use
  Company Number: NL-SUN PHARMACEUTICAL INDUSTRIES LTD-2020R1-237375

PATIENT
  Age: 46 Year
  Sex: Female

DRUGS (6)
  1. VERAPAMIL [Suspect]
     Active Substance: VERAPAMIL HYDROCHLORIDE
     Indication: PRINZMETAL ANGINA
     Dosage: 480 MILLIGRAM, TDD
     Route: 065
  2. PERINDOPRI [Concomitant]
     Indication: PRINZMETAL ANGINA
     Dosage: 2 MG TDD
     Route: 065
  3. VERAPAMIL [Suspect]
     Active Substance: VERAPAMIL HYDROCHLORIDE
     Dosage: 120 MILLIGRAM, QID
     Route: 065
  4. VERAPAMIL [Suspect]
     Active Substance: VERAPAMIL HYDROCHLORIDE
     Dosage: UNK
  5. ISOSORBIDE MONONITRATE CR [Concomitant]
     Indication: PRINZMETAL ANGINA
     Dosage: 120 MG TDD
     Route: 065
  6. VERAPAMIL [Suspect]
     Active Substance: VERAPAMIL HYDROCHLORIDE
     Indication: PRINZMETAL ANGINA
     Dosage: 120 MILLIGRAM, QID
     Route: 065

REACTIONS (6)
  - Cardiac arrest [Unknown]
  - Electrocardiogram ST segment elevation [Unknown]
  - Drug withdrawal syndrome [Unknown]
  - Pulseless electrical activity [Unknown]
  - Ventricular dysfunction [Unknown]
  - Atrioventricular block complete [Unknown]
